FAERS Safety Report 10994528 (Version 2)
Quarter: 2015Q2

REPORT INFORMATION
  Report Type: Report from Study
  Country: GB (occurrence: GB)
  Receive Date: 20150407
  Receipt Date: 20150414
  Transmission Date: 20150821
  Serious: Yes (Hospitalization)
  Sender: FDA-Public Use
  Company Number: GB-CELGENE-GBR-2015032648

PATIENT
  Age: 64 Year
  Sex: Male

DRUGS (2)
  1. REVLIMID [Suspect]
     Active Substance: LENALIDOMIDE
     Route: 048
     Dates: start: 20150330
  2. REVLIMID [Suspect]
     Active Substance: LENALIDOMIDE
     Indication: PLASMA CELL MYELOMA
     Route: 048
     Dates: start: 20140206, end: 20150302

REACTIONS (3)
  - Influenza [Recovered/Resolved]
  - CNS ventriculitis [Recovered/Resolved]
  - Chondrocalcinosis pyrophosphate [Recovering/Resolving]

NARRATIVE: CASE EVENT DATE: 20150301
